FAERS Safety Report 12799724 (Version 1)
Quarter: 2016Q3

REPORT INFORMATION
  Report Type: Spontaneous
  Country: GB (occurrence: GB)
  Receive Date: 20160930
  Receipt Date: 20160930
  Transmission Date: 20161109
  Serious: Yes (Other)
  Sender: FDA-Public Use
  Company Number: GB-PFIZER INC-2016455418

PATIENT
  Age: 32 Year
  Sex: Female
  Weight: 63.5 kg

DRUGS (1)
  1. DIFLUCAN [Suspect]
     Active Substance: FLUCONAZOLE
     Indication: VULVOVAGINAL CANDIDIASIS
     Dosage: UNK
     Route: 048

REACTIONS (9)
  - Mouth ulceration [Recovered/Resolved]
  - Tongue blistering [Recovered/Resolved]
  - Oropharyngeal blistering [Recovered/Resolved]
  - Gingival blister [Recovered/Resolved]
  - Blister [Recovered/Resolved]
  - Pain [Unknown]
  - Swelling [Unknown]
  - Burns second degree [Recovered/Resolved]
  - Lip blister [Recovered/Resolved]
